FAERS Safety Report 5369632-0 (Version None)
Quarter: 2007Q2

REPORT INFORMATION
  Report Type: 
  Country: None (occurrence: None)
  Receive Date: 20070625
  Receipt Date: 20070614
  Transmission Date: 20071010
  Serious: Yes (Death, Other)
  Sender: FDA-Public Use
  Company Number: FR-PFIZER INC-2006138200

PATIENT
  Sex: Female

DRUGS (4)
  1. LYRICA [Suspect]
     Indication: PAIN
     Dates: start: 20060713, end: 20060908
  2. LYRICA [Suspect]
     Indication: TRIGEMINAL NEURALGIA
  3. OXYNORM [Concomitant]
  4. ALL OTHER THERAPEUTIC PRODUCTS [Concomitant]

REACTIONS (8)
  - ARTHRALGIA [None]
  - GAIT DISTURBANCE [None]
  - JOINT SWELLING [None]
  - MUSCLE RIGIDITY [None]
  - MUSCLE SPASMS [None]
  - MYALGIA [None]
  - ROAD TRAFFIC ACCIDENT [None]
  - UNEVALUABLE EVENT [None]
